FAERS Safety Report 12340683 (Version 1)
Quarter: 2016Q2

REPORT INFORMATION
  Report Type: Spontaneous
  Country: US (occurrence: US)
  Receive Date: 20160506
  Receipt Date: 20160506
  Transmission Date: 20160815
  Serious: No
  Sender: FDA-Public Use
  Company Number: US-ELI_LILLY_AND_COMPANY-US201604003235

PATIENT
  Sex: Female

DRUGS (4)
  1. CYMBALTA [Suspect]
     Active Substance: DULOXETINE HYDROCHLORIDE
     Dosage: 60 MG, QD
     Route: 065
  2. CYMBALTA [Suspect]
     Active Substance: DULOXETINE HYDROCHLORIDE
     Indication: DEPRESSION
     Dosage: 20 MG, QD
     Route: 065
     Dates: start: 2015
  3. CYMBALTA [Suspect]
     Active Substance: DULOXETINE HYDROCHLORIDE
     Dosage: UNK, UNKNOWN
     Route: 065
     Dates: end: 20160325
  4. CYMBALTA [Suspect]
     Active Substance: DULOXETINE HYDROCHLORIDE
     Indication: PAIN
     Dosage: 30 MG, QD
     Route: 065

REACTIONS (18)
  - Paraesthesia [Unknown]
  - Hypertension [Unknown]
  - Abdominal pain upper [Unknown]
  - Insomnia [Unknown]
  - Disorientation [Unknown]
  - Confusional state [Unknown]
  - Decreased appetite [Unknown]
  - Dizziness [Unknown]
  - Dry eye [Unknown]
  - Off label use [Unknown]
  - Heart rate increased [Unknown]
  - Weight decreased [Unknown]
  - Speech disorder [Unknown]
  - Pain in extremity [Unknown]
  - Tinnitus [Unknown]
  - Diarrhoea [Unknown]
  - Hyperhidrosis [Unknown]
  - Nausea [Unknown]
